FAERS Safety Report 15862908 (Version 2)
Quarter: 2019Q1

REPORT INFORMATION
  Report Type: Spontaneous
  Country: US (occurrence: US)
  Receive Date: 20190124
  Receipt Date: 20190131
  Transmission Date: 20190417
  Serious: Yes (Hospitalization, Other)
  Sender: FDA-Public Use
  Company Number: US-SAMSUNG BIOEPIS-SB-2019-00745

PATIENT
  Age: 54 Year
  Sex: Male

DRUGS (3)
  1. INFLIXIMAB [Suspect]
     Active Substance: INFLIXIMAB
     Indication: NEUROSARCOIDOSIS
     Dosage: UNKNOWN
     Route: 065
  2. METHOTREXATE. [Suspect]
     Active Substance: METHOTREXATE
     Indication: NEUROSARCOIDOSIS
     Dosage: UNKNOWN
     Route: 065
  3. MYCOPHENOLATE [Concomitant]
     Active Substance: MYCOPHENOLIC ACID
     Indication: NEUROSARCOIDOSIS
     Route: 048

REACTIONS (6)
  - Histoplasmosis disseminated [Unknown]
  - Pneumonia pseudomonal [Unknown]
  - Acute kidney injury [Unknown]
  - Off label use [Unknown]
  - Pneumocystis jirovecii pneumonia [Unknown]
  - Pneumonia aspiration [Unknown]
